FAERS Safety Report 9962546 (Version 1)
Quarter: 2014Q1

REPORT INFORMATION
  Report Type: Report from Study
  Country: US (occurrence: US)
  Receive Date: 20140305
  Receipt Date: 20140305
  Transmission Date: 20141002
  Serious: No
  Sender: FDA-Public Use
  Company Number: US-ABBVIE-13P-163-1114407-00

PATIENT
  Age: 61 Year
  Sex: Male
  Weight: 118.04 kg

DRUGS (8)
  1. HUMIRA [Suspect]
     Indication: ANKYLOSING SPONDYLITIS
     Dates: start: 20130611
  2. CELEBREX [Concomitant]
     Indication: ANKYLOSING SPONDYLITIS
  3. HYDRALAZINE [Concomitant]
     Indication: BLOOD PRESSURE
  4. APRESOLINE [Concomitant]
     Indication: BLOOD PRESSURE
  5. DICYCLOMINE [Concomitant]
     Indication: IRRITABLE BOWEL SYNDROME
  6. ENALAPRIL [Concomitant]
     Indication: BLOOD PRESSURE
  7. ALLOPURINOL [Concomitant]
     Indication: GOUT
  8. ASPIRIN [Concomitant]
     Indication: CARDIOVASCULAR DISORDER

REACTIONS (1)
  - Fatigue [Not Recovered/Not Resolved]
